FAERS Safety Report 6059674-4 (Version None)
Quarter: 2009Q1

REPORT INFORMATION
  Report Type: 
  Country: None (occurrence: None)
  Receive Date: 20090123
  Receipt Date: 20090116
  Transmission Date: 20090719
  Serious: Yes (Death)
  Sender: FDA-Public Use
  Company Number: CIO09001354

PATIENT
  Sex: Female

DRUGS (1)
  1. VAPORUB FORM/VERSION UNKNOWN (CAMPHOR 129-150 MG, CEDAR LEAF OIL UNKNO [Suspect]
     Indication: NASAL CONGESTION
     Dosage: UNKNOWN, INTRANASAL
     Route: 045
     Dates: start: 19960101

REACTIONS (13)
  - ABASIA [None]
  - APHASIA [None]
  - BEDRIDDEN [None]
  - DEPENDENCE [None]
  - EYE DISORDER [None]
  - EYELID FUNCTION DISORDER [None]
  - GENERAL PHYSICAL HEALTH DETERIORATION [None]
  - HYPOKINESIA [None]
  - INCORRECT ROUTE OF DRUG ADMINISTRATION [None]
  - PARKINSON'S DISEASE [None]
  - PROGRESSIVE SUPRANUCLEAR PALSY [None]
  - SPEECH DISORDER [None]
  - TREMOR [None]
